FAERS Safety Report 5788763-4 (Version None)
Quarter: 2008Q2

REPORT INFORMATION
  Report Type: 
  Country: None (occurrence: None)
  Receive Date: 20080624
  Receipt Date: 20080619
  Transmission Date: 20081010
  Serious: Yes (Other)
  Sender: FDA-Public Use
  Company Number: CERZ-1000247

PATIENT
  Age: 38 Year
  Sex: Female
  Weight: 41.5 kg

DRUGS (3)
  1. CEREZYME [Suspect]
     Indication: GAUCHER'S DISEASE
     Dosage: 2600 U, Q2W, INTRAVENOUS
     Route: 042
     Dates: start: 20060612, end: 20080509
  2. NO-SPA (DROTAVERINE) [Concomitant]
  3. CALCIUM (CALCIUM) [Concomitant]

REACTIONS (2)
  - DRUG EXPOSURE DURING PREGNANCY [None]
  - IMMINENT ABORTION [None]
